FAERS Safety Report 8545625-7 (Version None)
Quarter: 2012Q3

REPORT INFORMATION
  Report Type: 
  Country: None (occurrence: None)
  Receive Date: 20120718
  Receipt Date: 20120718
  Transmission Date: 20120928
  Serious: No
  Sender: FDA-Public Use
  Company Number: None

PATIENT
  Age: 11 Year
  Sex: Male
  Weight: 72 kg

DRUGS (1)
  1. METHYLPHENIDATE [Suspect]
     Indication: ATTENTION DEFICIT/HYPERACTIVITY DISORDER
     Dosage: 18MG QAM PO
     Route: 048
     Dates: start: 20120101, end: 20120301

REACTIONS (4)
  - NAUSEA [None]
  - DRUG EFFECT DECREASED [None]
  - VOMITING [None]
  - HEADACHE [None]
